FAERS Safety Report 7209511-7 (Version None)
Quarter: 2011Q1

REPORT INFORMATION
  Report Type: 
  Country: None (occurrence: None)
  Receive Date: 20110103
  Receipt Date: 20110103
  Transmission Date: 20110831
  Serious: Yes (Hospitalization)
  Sender: FDA-Public Use
  Company Number: None

PATIENT
  Age: 86 Year
  Sex: Female
  Weight: 63 kg

DRUGS (2)
  1. SULFAMETHOXAZOLE AND TRIMETHOPRIM [Suspect]
     Indication: CELLULITIS
     Dosage: 2 TAB BID PO
     Route: 048
     Dates: start: 20101120, end: 20101126
  2. CIPROFLOXACIN [Suspect]
     Indication: URINARY TRACT INFECTION
     Dosage: 1 TAB BID PO
     Route: 048
     Dates: start: 20101118, end: 20101124

REACTIONS (5)
  - VOMITING [None]
  - NAUSEA [None]
  - ABDOMINAL PAIN [None]
  - CLOSTRIDIUM TEST POSITIVE [None]
  - DIARRHOEA [None]
